FAERS Safety Report 4544680-9 (Version None)
Quarter: 2004Q4

REPORT INFORMATION
  Report Type: 
  Country: None (occurrence: None)
  Receive Date: 20041230
  Receipt Date: 20041222
  Transmission Date: 20050328
  Serious: Yes (Hospitalization, Disabling)
  Sender: FDA-Public Use
  Company Number: TPA2004A01439

PATIENT
  Age: 57 Year
  Sex: Female
  Weight: 110.2241 kg

DRUGS (10)
  1. ACTOS [Suspect]
     Indication: DIABETES MELLITUS NON-INSULIN-DEPENDENT
     Dosage: 15 MG, 1 IN 1 D, PER ORAL
     Route: 048
  2. GLUCOTROL [Suspect]
     Indication: DIABETES MELLITUS NON-INSULIN-DEPENDENT
     Dosage: 10 MG, 2 IN 1 D, PER ORAL
     Route: 048
  3. METFORMIN (METFORMIN) (1000 MILLIGRAM) [Suspect]
     Indication: DIABETES MELLITUS NON-INSULIN-DEPENDENT
     Dosage: 1000 MG, 1 IN 1 D, PER ORAL
     Route: 048
  4. LISINOPRIL [Concomitant]
  5. LIPITOR [Concomitant]
  6. MOVE FREE (ALL OTHER THERAPEUTIC PRODUCTS) [Concomitant]
  7. CENTRUM-SILVER (CENTRUM SILVER) [Concomitant]
  8. FISH OIL CONCENRATE (ALL OTHER THERAPEUTIC PRODUCTS) [Concomitant]
  9. SKELAXIN [Concomitant]
  10. ULTRACET (ULTRACET) [Concomitant]

REACTIONS (6)
  - ARTHRITIS [None]
  - BLOOD GLUCOSE INCREASED [None]
  - CRUSH INJURY [None]
  - OEDEMA PERIPHERAL [None]
  - PAIN [None]
  - ROAD TRAFFIC ACCIDENT [None]
